FAERS Safety Report 10160165 (Version 2)
Quarter: 2014Q2

REPORT INFORMATION
  Report Type: Spontaneous
  Country: US (occurrence: US)
  Receive Date: 20140508
  Receipt Date: 20140620
  Transmission Date: 20141212
  Serious: Yes (Hospitalization)
  Sender: FDA-Public Use
  Company Number: US-ASTRAZENECA-2014SE30130

PATIENT
  Age: 66 Year
  Sex: Male
  Weight: 133.4 kg

DRUGS (8)
  1. SYMBICORT [Suspect]
     Indication: CHRONIC OBSTRUCTIVE PULMONARY DISEASE
     Dosage: 160/4.5 MCG, 1 PUFF BID
     Route: 055
  2. SYMBICORT [Suspect]
     Indication: CHRONIC OBSTRUCTIVE PULMONARY DISEASE
     Dosage: 160/4.5 MCG, 1 PUFF BID
     Route: 055
     Dates: start: 20140430
  3. ASPIRIN [Suspect]
  4. MORPHINE [Suspect]
  5. CODEINE [Suspect]
  6. SPIRIVA [Concomitant]
     Indication: CHRONIC OBSTRUCTIVE PULMONARY DISEASE
     Route: 055
  7. BROMIDE ALBUTEROL [Concomitant]
     Indication: CHRONIC OBSTRUCTIVE PULMONARY DISEASE
     Route: 055
     Dates: start: 2010
  8. ENZONATATE [Concomitant]
     Indication: COUGH
     Dosage: 100 PRN
     Route: 048
     Dates: start: 2010

REACTIONS (10)
  - Cardiac failure congestive [Unknown]
  - Pulmonary oedema [Unknown]
  - Dyspnoea [Unknown]
  - Musculoskeletal discomfort [Unknown]
  - Pain in extremity [Unknown]
  - Oxygen saturation decreased [Unknown]
  - Muscle twitching [Unknown]
  - Drug hypersensitivity [Unknown]
  - Off label use [Unknown]
  - Intentional product misuse [Unknown]
